FAERS Safety Report 9278114 (Version 1)
Quarter: 2013Q2

REPORT INFORMATION
  Report Type: Spontaneous
  Country: MX (occurrence: MX)
  Receive Date: 20130508
  Receipt Date: 20130508
  Transmission Date: 20140414
  Serious: Yes (Death)
  Sender: FDA-Public Use
  Company Number: MX-PFIZER INC-2013142757

PATIENT
  Age: 18 Year
  Sex: Male
  Weight: 85 kg

DRUGS (1)
  1. ALTRULINE [Suspect]
     Dosage: 100 MG, 1X/DAY
     Route: 048
     Dates: start: 20121116, end: 20130427

REACTIONS (1)
  - Completed suicide [Fatal]
